FAERS Safety Report 24053437 (Version 1)
Quarter: 2024Q3

REPORT INFORMATION
  Report Type: Spontaneous
  Country: US (occurrence: US)
  Receive Date: 20240705
  Receipt Date: 20240705
  Transmission Date: 20241017
  Serious: Yes (Other)
  Sender: GILEAD
  Company Number: US-GILEAD-2024-0679457

PATIENT

DRUGS (1)
  1. EPCLUSA [Suspect]
     Active Substance: SOFOSBUVIR\VELPATASVIR
     Indication: HIV infection
     Route: 065

REACTIONS (6)
  - Cardiac arrest [Unknown]
  - Bradycardia [Unknown]
  - Liver disorder [Unknown]
  - Fatigue [Unknown]
  - Injury [Unknown]
  - Viral infection [Unknown]
